FAERS Safety Report 8957039 (Version 1)
Quarter: 2012Q4

REPORT INFORMATION
  Report Type: Report from Study
  Country: FR (occurrence: FR)
  Receive Date: 20121211
  Receipt Date: 20121211
  Transmission Date: 20130627
  Serious: Yes (Hospitalization)
  Sender: FDA-Public Use
  Company Number: FR-ROCHE-576101

PATIENT
  Sex: Female

DRUGS (7)
  1. RITUXIMAB [Suspect]
     Indication: RHEUMATOID ARTHRITIS
     Dosage: DRUG REPORTED AS: MABTHERA POLYARTHRITIS
FORMULATION REPORTED AS: INJECTABLE SOLUTION.
     Route: 042
  2. FERO-GRAD [Concomitant]
     Dosage: DRUG REPORTED AS: FERO-GRAD VIT C.
     Route: 048
  3. OMEPRAZOLE [Concomitant]
     Route: 048
  4. ARAVA [Concomitant]
     Indication: RHEUMATOID ARTHRITIS
     Dosage: DRUG REPORTED AS: ARAVA 20.
     Route: 048
  5. ACTONEL [Concomitant]
     Indication: OSTEOPOROSIS
     Dosage: DRUG: ACTONEL 35 MG.
     Route: 048
  6. DENSICAL [Concomitant]
     Indication: OSTEOPOROSIS
     Route: 048
  7. CORTANCYL [Concomitant]
     Indication: RHEUMATOID ARTHRITIS
     Route: 048

REACTIONS (1)
  - Breast cancer [Recovered/Resolved with Sequelae]
